FAERS Safety Report 8475641-5 (Version None)
Quarter: 2012Q2

REPORT INFORMATION
  Report Type: 
  Country: None (occurrence: None)
  Receive Date: 20120628
  Receipt Date: 20120621
  Transmission Date: 20120825
  Serious: Yes (Life-Threatening, Other)
  Sender: FDA-Public Use
  Company Number: GB-TEVA-344300ISR

PATIENT
  Age: 29 Year
  Sex: Male
  Weight: 54 kg

DRUGS (7)
  1. CODEINE [Concomitant]
     Indication: PAIN
     Dosage: 240 MILLIGRAM;
     Route: 048
     Dates: start: 20120521, end: 20120524
  2. TRAMADOL HCL [Suspect]
     Indication: ABDOMINAL PAIN
     Dosage: 50-100 MG, FOUR TIMES A DAY
     Route: 048
     Dates: start: 20120524
  3. LORAZEPAM [Concomitant]
     Indication: AGITATION
     Dosage: 4 MILLIGRAM;
     Route: 048
     Dates: start: 20120513
  4. ACETAMINOPHEN [Concomitant]
     Indication: ABDOMINAL PAIN
     Dosage: 4 GRAM;
     Route: 048
     Dates: start: 20120513
  5. OLANZAPINE [Concomitant]
     Indication: PSYCHOTIC DISORDER
     Dosage: 10 MILLIGRAM;
     Route: 048
     Dates: start: 20120513
  6. ZOPICLONE [Concomitant]
     Indication: INSOMNIA
     Dosage: 7.5 MILLIGRAM; AT NIGHT
     Route: 048
     Dates: start: 20120513
  7. CLOPIXOL [Interacting]
     Indication: PSYCHOTIC DISORDER
     Dosage: STAT DOSE. TEST DOSE PRIOR TO MAINTENANCE DEPOT
     Route: 030
     Dates: start: 20120531, end: 20120531

REACTIONS (5)
  - SYNCOPE [None]
  - DYSKINESIA [None]
  - DRUG INTERACTION [None]
  - CONVULSION [None]
  - MUSCLE RIGIDITY [None]
